FAERS Safety Report 15184236 (Version 1)
Quarter: 2018Q3

REPORT INFORMATION
  Report Type: Spontaneous
  Country: US (occurrence: US)
  Receive Date: 20180723
  Receipt Date: 20180723
  Transmission Date: 20181010
  Serious: No
  Sender: FDA-Public Use
  Company Number: US-TARO-2018TAR00372

PATIENT
  Age: 73 Year
  Sex: Female
  Weight: 68.27 kg

DRUGS (7)
  1. NAFTIFINE HYDROCHLORIDE CREAM USP 2% [Suspect]
     Active Substance: NAFTIFINE HYDROCHLORIDE
     Dosage: UNK, 1X/DAY
     Route: 061
     Dates: start: 201805
  2. QUNOL [Concomitant]
  3. FISH OIL [Concomitant]
     Active Substance: FISH OIL
  4. VITAMIN D [Concomitant]
     Active Substance: CHOLECALCIFEROL
     Dosage: UNK
  5. NAFTIFINE HYDROCHLORIDE CREAM USP 2% [Suspect]
     Active Substance: NAFTIFINE HYDROCHLORIDE
     Indication: FUNGAL SKIN INFECTION
     Dosage: UNK UNK, 2X/DAY
     Route: 061
     Dates: start: 20180502, end: 201805
  6. SIMVASTATIN. [Concomitant]
     Active Substance: SIMVASTATIN
     Dosage: UNK
  7. ALPRAZOLAM. [Concomitant]
     Active Substance: ALPRAZOLAM
     Dosage: UNK

REACTIONS (3)
  - Inappropriate schedule of drug administration [Recovered/Resolved]
  - Pruritus [Unknown]
  - Incorrect drug administration duration [Not Recovered/Not Resolved]

NARRATIVE: CASE EVENT DATE: 201805
